FAERS Safety Report 15523328 (Version 2)
Quarter: 2019Q4

REPORT INFORMATION
  Report Type: Report from Study
  Country: US (occurrence: US)
  Receive Date: 20181018
  Receipt Date: 20191009
  Transmission Date: 20200122
  Serious: Yes (Other)
  Sender: FDA-Public Use
  Company Number: US-ROCHE-2197640

PATIENT
  Age: 68 Year
  Sex: Male
  Weight: 89.4 kg

DRUGS (1)
  1. VISMODEGIB. [Suspect]
     Active Substance: VISMODEGIB
     Indication: GRAFT VERSUS HOST DISEASE
     Dosage: LAST TREATMENT DATE: 18/FEB/2018
     Route: 065
     Dates: start: 20170823

REACTIONS (4)
  - Skin ulcer [Unknown]
  - Neutrophil count decreased [Unknown]
  - Weight decreased [Unknown]
  - Dental caries [Unknown]
